FAERS Safety Report 10167997 (Version 2)
Quarter: 2014Q2

REPORT INFORMATION
  Report Type: Spontaneous
  Country: JP (occurrence: JP)
  Receive Date: 20140512
  Receipt Date: 20140520
  Transmission Date: 20141212
  Serious: Yes (Hospitalization)
  Sender: FDA-Public Use
  Company Number: JP-GLAXOSMITHKLINE-B0992421A

PATIENT
  Age: 16 Year
  Sex: Female

DRUGS (2)
  1. LAMICTAL [Suspect]
     Indication: EPILEPSY
     Dosage: 25MG TWICE PER DAY
     Route: 048
     Dates: start: 20140407, end: 20140416
  2. TEGRETOL [Concomitant]
     Indication: EPILEPSY
     Dosage: 50MG PER DAY
     Route: 048
     Dates: start: 20140407, end: 20140416

REACTIONS (4)
  - Disseminated intravascular coagulation [Recovered/Resolved]
  - Rash [Recovered/Resolved]
  - Pyrexia [Recovering/Resolving]
  - Pyrexia [Recovering/Resolving]
